FAERS Safety Report 7844842-9 (Version None)
Quarter: 2011Q4

REPORT INFORMATION
  Report Type: 
  Country: None (occurrence: None)
  Receive Date: 20111025
  Receipt Date: 20110711
  Transmission Date: 20120403
  Serious: Yes (Other)
  Sender: FDA-Public Use
  Company Number: DK-GLAXOSMITHKLINE-B0733772A

PATIENT
  Sex: Female
  Weight: 73.6 kg

DRUGS (15)
  1. ACETAMINOPHEN [Concomitant]
     Indication: HEADACHE
     Dates: start: 20060816
  2. MAGNESIUM HYDROXIDE [Concomitant]
     Route: 048
  3. TRAMADOL HCL [Suspect]
     Indication: PAIN
     Route: 065
     Dates: start: 20060816, end: 20061201
  4. IBUPROFEN [Concomitant]
     Indication: PAIN
     Dates: start: 20061201
  5. IMOVANE [Suspect]
     Indication: INSOMNIA
     Route: 065
     Dates: start: 20060405, end: 20110401
  6. EFFEXOR [Suspect]
     Indication: PRODUCT USED FOR UNKNOWN INDICATION
     Route: 065
     Dates: start: 20060928, end: 20081201
  7. IBRUPROFEN [Suspect]
     Indication: HEADACHE
     Route: 065
     Dates: start: 20060816
  8. PAROXETINE HCL [Concomitant]
     Dates: end: 20100101
  9. MIANSERIN [Suspect]
     Indication: DEPRESSION
     Route: 065
     Dates: start: 20080925, end: 20081201
  10. MIGEA [Suspect]
     Indication: MIGRAINE
     Route: 065
     Dates: start: 20100618
  11. TRUXAL [Suspect]
     Indication: PSYCHOTIC DISORDER
     Route: 065
     Dates: start: 20061201, end: 20110801
  12. NORTRIPTYLINE HCL [Suspect]
     Indication: DEPRESSION
     Route: 065
     Dates: start: 20090223, end: 20110701
  13. PAMOL [Concomitant]
     Indication: PAIN
     Dates: start: 20061201
  14. PAROXETINE HCL [Suspect]
     Indication: DEPRESSION
     Route: 065
     Dates: start: 20090223
  15. MIRTAZAPINE [Suspect]
     Indication: ANXIETY
     Route: 065
     Dates: start: 20060302, end: 20110401

REACTIONS (8)
  - ABDOMINAL DISTENSION [None]
  - HAEMORRHOIDS [None]
  - DYSPEPSIA [None]
  - GASTROOESOPHAGEAL REFLUX DISEASE [None]
  - OEDEMA [None]
  - CONSTIPATION [None]
  - RECTAL HAEMORRHAGE [None]
  - FAECES HARD [None]
